FAERS Safety Report 20012444 (Version 2)
Quarter: 2021Q4

REPORT INFORMATION
  Report Type: Spontaneous
  Country: US (occurrence: US)
  Receive Date: 20211029
  Receipt Date: 20211108
  Transmission Date: 20220303
  Serious: No
  Sender: FDA-Public Use
  Company Number: US-BOEHRINGERINGELHEIM-2021-BI-135345

PATIENT

DRUGS (1)
  1. OFEV [Suspect]
     Active Substance: NINTEDANIB
     Indication: Product used for unknown indication
     Dates: start: 20211025

REACTIONS (6)
  - Blood pressure increased [Recovering/Resolving]
  - Taste disorder [Unknown]
  - Headache [Recovered/Resolved]
  - Frequent bowel movements [Unknown]
  - Faeces soft [Unknown]
  - Tenderness [Unknown]

NARRATIVE: CASE EVENT DATE: 20211001
